FAERS Safety Report 25021648 (Version 3)
Quarter: 2025Q2

REPORT INFORMATION
  Report Type: Spontaneous
  Country: CN (occurrence: CN)
  Receive Date: 20250228
  Receipt Date: 20250428
  Transmission Date: 20250716
  Serious: Yes (Hospitalization, Other)
  Sender: SANOFI AVENTIS
  Company Number: CN-MLMSERVICE-20250219-PI413748-00158-3

PATIENT
  Age: 53 Year
  Sex: Female

DRUGS (12)
  1. OXALIPLATIN [Suspect]
     Active Substance: OXALIPLATIN
     Indication: Pancreatic carcinoma
     Dates: start: 20221215
  2. OXALIPLATIN [Suspect]
     Active Substance: OXALIPLATIN
     Indication: Metastases to liver
     Dates: start: 20230202, end: 20230329
  3. OXALIPLATIN [Suspect]
     Active Substance: OXALIPLATIN
     Dates: start: 20230412, end: 20230711
  4. LEUCOVORIN [Suspect]
     Active Substance: LEUCOVORIN\LEUCOVORIN CALCIUM
     Indication: Pancreatic carcinoma
     Dates: start: 20221215
  5. LEUCOVORIN [Suspect]
     Active Substance: LEUCOVORIN\LEUCOVORIN CALCIUM
     Indication: Metastases to liver
     Dates: start: 20230202, end: 20230329
  6. LEUCOVORIN [Suspect]
     Active Substance: LEUCOVORIN\LEUCOVORIN CALCIUM
     Dates: start: 20230412, end: 20230711
  7. FLUOROURACIL [Suspect]
     Active Substance: FLUOROURACIL
     Indication: Pancreatic carcinoma
     Dates: start: 20221215
  8. FLUOROURACIL [Suspect]
     Active Substance: FLUOROURACIL
     Indication: Metastases to liver
     Dates: start: 20230202, end: 20230329
  9. FLUOROURACIL [Suspect]
     Active Substance: FLUOROURACIL
     Dates: start: 20230412, end: 20230711
  10. IRINOTECAN [Suspect]
     Active Substance: IRINOTECAN
     Indication: Pancreatic carcinoma
     Dates: start: 20221215
  11. IRINOTECAN [Suspect]
     Active Substance: IRINOTECAN
     Indication: Metastases to liver
     Dates: start: 20230202, end: 20230329
  12. IRINOTECAN [Suspect]
     Active Substance: IRINOTECAN
     Dates: start: 20230412, end: 20230711

REACTIONS (9)
  - Myelosuppression [Unknown]
  - Liver abscess [Recovered/Resolved]
  - Candida infection [Recovered/Resolved]
  - COVID-19 [Recovered/Resolved]
  - Gastrointestinal disorder [Unknown]
  - Pyrexia [Unknown]
  - Abdominal pain [Unknown]
  - Decreased appetite [Unknown]
  - Off label use [Unknown]

NARRATIVE: CASE EVENT DATE: 20221201
